FAERS Safety Report 10527231 (Version 5)
Quarter: 2015Q2

REPORT INFORMATION
  Report Type: Spontaneous
  Country: US (occurrence: US)
  Receive Date: 20141020
  Receipt Date: 20150626
  Transmission Date: 20150821
  Serious: Yes (Other)
  Sender: FDA-Public Use
  Company Number: US-UCBSA-8033739

PATIENT
  Age: 39 Year
  Sex: Female
  Weight: 68.18 kg

DRUGS (19)
  1. XYREM [Suspect]
     Active Substance: SODIUM OXYBATE
     Dosage: 4 G FOR THE FIRST DOSE AND 2 G FOR THE SECOND DOSE
     Route: 048
     Dates: start: 20081108, end: 2010
  2. TYLENOL [Concomitant]
     Active Substance: ACETAMINOPHEN
     Indication: PAIN
  3. OXYCONTIN [Concomitant]
     Active Substance: OXYCODONE HYDROCHLORIDE
     Indication: PRODUCT USED FOR UNKNOWN INDICATION
     Dosage: UNK
  4. XYREM [Suspect]
     Active Substance: SODIUM OXYBATE
     Dosage: 3 G, 2X/DAY (BID)
     Route: 048
     Dates: start: 200805, end: 200805
  5. ALPRAZOLAM. [Suspect]
     Active Substance: ALPRAZOLAM
     Indication: PRODUCT USED FOR UNKNOWN INDICATION
     Dosage: UNKNOWN
  6. XYREM [Suspect]
     Active Substance: SODIUM OXYBATE
     Indication: NARCOLEPSY
     Dosage: NIGHTLY
     Route: 048
     Dates: start: 200803, end: 200804
  7. XYREM [Suspect]
     Active Substance: SODIUM OXYBATE
     Dosage: NIGHTLY
     Route: 048
     Dates: start: 20100629
  8. ATENOLOL. [Concomitant]
     Active Substance: ATENOLOL
     Indication: HEART RATE INCREASED
     Dosage: 25 MG, ONCE DAILY (QD)
     Dates: start: 200808
  9. ACETAMINOPHEN. [Concomitant]
     Active Substance: ACETAMINOPHEN
     Indication: PAIN
  10. VALIUM [Concomitant]
     Active Substance: DIAZEPAM
     Indication: PRODUCT USED FOR UNKNOWN INDICATION
     Dosage: 10 MG, 4X/DAY (QID)
  11. XANAX [Concomitant]
     Active Substance: ALPRAZOLAM
     Indication: PRODUCT USED FOR UNKNOWN INDICATION
     Dosage: 2 TO 3 TIMES DAILY AS NEEDED
  12. XYREM [Suspect]
     Active Substance: SODIUM OXYBATE
     Indication: SOMNOLENCE
     Dosage: NIGHTLY
     Route: 048
     Dates: start: 200804, end: 200805
  13. XYREM [Suspect]
     Active Substance: SODIUM OXYBATE
     Dosage: NIGHTLY INCREASED FIRST DOSE AND DECREASED SECOND DOSE
     Route: 048
     Dates: start: 200807, end: 20081107
  14. DIAZEPAM. [Suspect]
     Active Substance: DIAZEPAM
     Indication: PRODUCT USED FOR UNKNOWN INDICATION
     Dosage: UNKNOWN
  15. LORATADINE. [Concomitant]
     Active Substance: LORATADINE
     Indication: HYPERSENSITIVITY
  16. PANCRELIPASE. [Concomitant]
     Active Substance: PANCRELIPASE
     Indication: PANCREATIC DISORDER
     Dosage: 1-2, EACH MEAL = 20MG
     Dates: start: 200903
  17. XYREM [Suspect]
     Active Substance: SODIUM OXYBATE
     Dosage: 3 G, 2X/DAY (BID)
     Route: 048
     Dates: start: 2008, end: 200807
  18. CLARITIN [Concomitant]
     Active Substance: LORATADINE
     Indication: HYPERSENSITIVITY
     Dosage: UNK UNK, ONCE DAILY (QD)
  19. CONJUGATED ESTROGENS / MEDROXYPROGESTERONE ACETATE [Concomitant]
     Indication: HORMONE REPLACEMENT THERAPY
     Dates: start: 200810

REACTIONS (23)
  - Heart rate increased [Unknown]
  - Muscle fatigue [Unknown]
  - Amenorrhoea [Unknown]
  - Feeling abnormal [Unknown]
  - Blood follicle stimulating hormone increased [Unknown]
  - Therapeutic response decreased [Unknown]
  - Initial insomnia [Unknown]
  - Sensory loss [Unknown]
  - Muscular weakness [Unknown]
  - Hypoaesthesia [Unknown]
  - Back pain [Unknown]
  - Blood luteinising hormone increased [Unknown]
  - Dyspepsia [Recovered/Resolved]
  - Activities of daily living impaired [Recovering/Resolving]
  - Mitochondrial myopathy acquired [Not Recovered/Not Resolved]
  - Neuralgia [Unknown]
  - Rash [Unknown]
  - Blood oestrogen increased [Unknown]
  - Oedema peripheral [Unknown]
  - Somnambulism [Recovered/Resolved]
  - Middle insomnia [Unknown]
  - Hepatic steatosis [Unknown]
  - Somnolence [Unknown]

NARRATIVE: CASE EVENT DATE: 2008
